FAERS Safety Report 15164491 (Version 1)
Quarter: 2018Q3

REPORT INFORMATION
  Report Type: Spontaneous
  Country: JP (occurrence: JP)
  Receive Date: 20180719
  Receipt Date: 20180719
  Transmission Date: 20181010
  Serious: Yes (Hospitalization)
  Sender: FDA-Public Use
  Company Number: JP-SUN PHARMACEUTICAL INDUSTRIES LTD-2018RR-178766

PATIENT
  Age: 38 Year
  Sex: Male

DRUGS (6)
  1. BUROTIZOLAM [Suspect]
     Active Substance: BROTIZOLAM
     Indication: SCHIZOPHRENIA
     Dosage: 48 DF
     Route: 065
  2. ESZOPICLONE. [Suspect]
     Active Substance: ESZOPICLONE
     Indication: SCHIZOPHRENIA
     Dosage: 2 MG, 30 TABLETS
     Route: 065
  3. LEVOMEPROMAZINE [Suspect]
     Active Substance: LEVOMEPROMAZINE
     Indication: SCHIZOPHRENIA
     Dosage: 14 DF
     Route: 065
  4. RISPERIDONE. [Suspect]
     Active Substance: RISPERIDONE
     Indication: SCHIZOPHRENIA
     Dosage: 6 MG
     Route: 065
  5. HALOXAZOLAM [Suspect]
     Active Substance: HALOXAZOLAM
     Indication: SCHIZOPHRENIA
     Dosage: 42 DF
     Route: 065
  6. BROTIZOLAM [Suspect]
     Active Substance: BROTIZOLAM
     Indication: SCHIZOPHRENIA
     Dosage: 0.25 MG, 76 TABLETS
     Route: 065

REACTIONS (10)
  - Treatment noncompliance [Unknown]
  - Blood creatine phosphokinase increased [Unknown]
  - White blood cell count increased [Unknown]
  - Blood chloride increased [Unknown]
  - Intentional overdose [None]
  - Insomnia [None]
  - Loss of consciousness [Unknown]
  - Overdose [Unknown]
  - Intentional product use issue [None]
  - Suicide attempt [Unknown]
